FAERS Safety Report 13072041 (Version 1)
Quarter: 2016Q4

REPORT INFORMATION
  Report Type: Spontaneous
  Country: US (occurrence: US)
  Receive Date: 20161229
  Receipt Date: 20161229
  Transmission Date: 20170207
  Serious: Yes (Death, Other)
  Sender: FDA-Public Use
  Company Number: US-PFIZER INC-2016298199

PATIENT
  Sex: Male
  Weight: 81.63 kg

DRUGS (4)
  1. LITHIUM. [Concomitant]
     Active Substance: LITHIUM
     Indication: BIPOLAR DISORDER
     Dosage: UNK
  2. SEROQUEL [Concomitant]
     Active Substance: QUETIAPINE FUMARATE
     Dosage: UNK
     Dates: start: 20160210
  3. CHANTIX [Suspect]
     Active Substance: VARENICLINE TARTRATE
     Indication: SMOKING CESSATION THERAPY
     Dosage: UNK
  4. NAC [Concomitant]
     Indication: BIPOLAR DISORDER
     Dosage: UNK

REACTIONS (10)
  - Abnormal behaviour [Unknown]
  - Malaise [Unknown]
  - Aggression [Unknown]
  - Anger [Unknown]
  - Insomnia [Unknown]
  - Gun shot wound [Fatal]
  - Personality change [Unknown]
  - Hallucination [Unknown]
  - Daydreaming [Unknown]
  - Mental disorder [Unknown]

NARRATIVE: CASE EVENT DATE: 20160301
